FAERS Safety Report 9189582 (Version 1)
Quarter: 2013Q1

REPORT INFORMATION
  Report Type: Spontaneous
  Country: GB (occurrence: GB)
  Receive Date: 20130326
  Receipt Date: 20130326
  Transmission Date: 20140127
  Serious: Yes (Life-Threatening, Other)
  Sender: FDA-Public Use
  Company Number: GB-ACCORD-016898

PATIENT
  Age: 85 Year
  Sex: Female

DRUGS (12)
  1. HYPROMELLOSE [Concomitant]
  2. SIMVASTATIN [Concomitant]
     Dosage: AT NIGHT.
  3. XALACOM [Concomitant]
  4. ATENOLOL [Concomitant]
  5. AMLODIPINE [Concomitant]
  6. LACTULOSE [Concomitant]
     Dosage: AS NECESSARY
  7. DONEPEZIL [Suspect]
     Indication: DEMENTIA ALZHEIMER^S TYPE
     Dosage: AT NIGHT. 4 DOSES.
     Route: 048
     Dates: start: 20130222, end: 20130225
  8. SENNA [Concomitant]
     Dosage: AT NIGHT.
  9. HYDROCHLOROTHIAZIDE W/IRBESARTAN [Concomitant]
     Dosage: 150//12.5MG
  10. GAVISCON [Concomitant]
     Dosage: AS NECESSARY
  11. CO-CODAMOL [Concomitant]
     Dosage: 30/500, 1-2 FOUR TIMES A DAY AS NECESSARY
  12. VITAMIN B [Concomitant]
     Dosage: CO-STRONG

REACTIONS (5)
  - Convulsion [Recovered/Resolved]
  - Respiratory rate increased [Recovered/Resolved]
  - Muscle rigidity [Recovered/Resolved]
  - Loss of consciousness [Recovered/Resolved]
  - Tremor [Recovered/Resolved]
